FAERS Safety Report 7229009-X (Version None)
Quarter: 2011Q1

REPORT INFORMATION
  Report Type: 
  Country: None (occurrence: None)
  Receive Date: 20110117
  Receipt Date: 20110105
  Transmission Date: 20110831
  Serious: Yes (Other)
  Sender: FDA-Public Use
  Company Number: PHFR2010GB02285

PATIENT
  Sex: Male

DRUGS (6)
  1. CLOZARIL [Suspect]
     Indication: SCHIZOPHRENIA, PARANOID TYPE
     Dosage: 300MG, UNK
     Route: 048
     Dates: start: 20030101
  2. ARIPIPRAZOLE [Concomitant]
     Indication: SCHIZOPHRENIA, PARANOID TYPE
     Dosage: 10MG, UNK
     Route: 048
     Dates: start: 20090729
  3. FLUOXETINE [Concomitant]
     Indication: DEPRESSION
     Dosage: 80MG, UNK
     Route: 048
     Dates: start: 20050101
  4. RANITIDINE [Concomitant]
     Route: 065
  5. CLOZARIL [Suspect]
     Indication: SCHIZOPHRENIA
     Route: 048
     Dates: start: 20000327, end: 19000101
  6. DIAZEPAM [Concomitant]
     Dosage: 15MG, PRN
     Route: 048
     Dates: start: 20090101

REACTIONS (4)
  - TESTICULAR MASS [None]
  - NEUTROPHIL COUNT INCREASED [None]
  - WHITE BLOOD CELL COUNT INCREASED [None]
  - EOSINOPHIL COUNT INCREASED [None]
